FAERS Safety Report 13224767 (Version 3)
Quarter: 2018Q1

REPORT INFORMATION
  Report Type: Report from Study
  Country: US (occurrence: US)
  Receive Date: 20170213
  Receipt Date: 20180219
  Transmission Date: 20180508
  Serious: Yes (Death, Other)
  Sender: FDA-Public Use
  Company Number: US-ROCHE-1890184

PATIENT

DRUGS (7)
  1. CYCLOPHOSPHAMIDE. [Suspect]
     Active Substance: CYCLOPHOSPHAMIDE
     Indication: B-CELL LYMPHOMA
     Route: 042
  2. VINCRISTINE [Suspect]
     Active Substance: VINCRISTINE
     Indication: B-CELL LYMPHOMA
     Dosage: 1.4 MG/M2, CAPPED AT 2 MG
     Route: 042
  3. I-131 TOSITUMOMAB [Suspect]
     Active Substance: TOSITUMOMAB I-131
     Indication: B-CELL LYMPHOMA
     Route: 065
  4. DOXORUBICIN [Suspect]
     Active Substance: DOXORUBICIN
     Indication: B-CELL LYMPHOMA
     Route: 042
  5. PREDNISONE. [Suspect]
     Active Substance: PREDNISONE
     Indication: B-CELL LYMPHOMA
     Dosage: DAY 1-5
     Route: 048
  6. RITUXIMAB. [Suspect]
     Active Substance: RITUXIMAB
     Indication: B-CELL LYMPHOMA
     Route: 042
  7. RITUXIMAB. [Suspect]
     Active Substance: RITUXIMAB
     Route: 042

REACTIONS (51)
  - Neoplasm malignant [Fatal]
  - Anaemia [Unknown]
  - Hypersensitivity [Unknown]
  - Opportunistic infection [Unknown]
  - Thrombosis [Unknown]
  - Pulmonary hypertension [Unknown]
  - Presyncope [Unknown]
  - Renal cell carcinoma [Fatal]
  - Neutropenia [Unknown]
  - Febrile neutropenia [Unknown]
  - Myalgia [Unknown]
  - Skin infection [Unknown]
  - Peripheral motor neuropathy [Unknown]
  - Syncope [Unknown]
  - Pain [Unknown]
  - Acute myeloid leukaemia [Fatal]
  - Bone pain [Unknown]
  - Pneumonia [Unknown]
  - Colorectal cancer [Fatal]
  - Headache [Unknown]
  - Cough [Unknown]
  - Hypoalbuminaemia [Unknown]
  - Tooth infection [Unknown]
  - Incorrect dose administered [Fatal]
  - Fatigue [Unknown]
  - Decreased appetite [Unknown]
  - Asthenia [Unknown]
  - Lymphopenia [Unknown]
  - Diarrhoea [Unknown]
  - Urinary tract infection [Unknown]
  - Upper respiratory tract infection [Unknown]
  - Sepsis [Unknown]
  - Ear infection [Unknown]
  - Enteritis [Unknown]
  - Abdominal pain [Unknown]
  - Weight decreased [Unknown]
  - Anxiety [Unknown]
  - Leukopenia [Unknown]
  - Thrombocytopenia [Unknown]
  - Peripheral sensory neuropathy [Unknown]
  - Hyperglycaemia [Unknown]
  - Nausea [Unknown]
  - Vomiting [Unknown]
  - Vision blurred [Unknown]
  - Cardiac failure [Unknown]
  - Cardiomyopathy [Unknown]
  - Sarcoma [Fatal]
  - Bone marrow failure [Unknown]
  - Dyspnoea [Unknown]
  - Pyrexia [Unknown]
  - Wound infection [Unknown]
